FAERS Safety Report 5997866-0 (Version None)
Quarter: 2008Q4

REPORT INFORMATION
  Report Type: 
  Country: None (occurrence: None)
  Receive Date: 20081212
  Receipt Date: 20081117
  Transmission Date: 20090506
  Serious: No
  Sender: FDA-Public Use
  Company Number: US-ABBOTT-08P-163-0489727-00

PATIENT
  Sex: Female
  Weight: 63.56 kg

DRUGS (20)
  1. HUMIRA [Suspect]
     Indication: DRUG USE FOR UNKNOWN INDICATION
     Route: 050
     Dates: end: 20080210
  2. VITAMIN TAB [Concomitant]
     Indication: DRUG USE FOR UNKNOWN INDICATION
     Route: 048
     Dates: start: 20080215
  3. PROBIOTICS (NOS) [Concomitant]
     Indication: GASTROINTESTINAL DISORDER
     Route: 048
     Dates: end: 20080908
  4. PROBIOTICS (NOS) [Concomitant]
     Route: 048
     Dates: start: 20080909
  5. DOCOSAHEXANOIC ACID [Concomitant]
     Indication: DRUG USE FOR UNKNOWN INDICATION
     Route: 048
     Dates: start: 20080301
  6. FISH OIL [Concomitant]
     Indication: DRUG USE FOR UNKNOWN INDICATION
     Route: 048
     Dates: start: 20080301
  7. FISH OIL [Concomitant]
     Route: 048
     Dates: end: 20080214
  8. FOLIC ACID [Concomitant]
     Indication: GASTROINTESTINAL DISORDER
     Route: 048
     Dates: end: 20080214
  9. FOLIC ACID [Concomitant]
     Route: 048
     Dates: start: 20080215, end: 20080908
  10. FOLIC ACID [Concomitant]
     Route: 048
     Dates: start: 20080909
  11. MESALAMINE [Concomitant]
     Indication: COLITIS ULCERATIVE
     Route: 048
     Dates: end: 20080908
  12. AMOXICILLIN [Concomitant]
     Indication: OROPHARYNGEAL PAIN
     Route: 048
     Dates: start: 20080325, end: 20080401
  13. CALCIUM CARBONATE [Concomitant]
     Indication: DYSPEPSIA
     Route: 048
     Dates: start: 20080615, end: 20080910
  14. CLOBETASOL PROPIONATE [Concomitant]
     Indication: DRUG USE FOR UNKNOWN INDICATION
     Dosage: FOAM FOR FACE AND SCALP
     Route: 061
     Dates: start: 20080807, end: 20080820
  15. ACYCLOVIR SODIUM [Concomitant]
     Indication: GENITAL HERPES
     Route: 048
     Dates: start: 20080824, end: 20080903
  16. ACYCLOVIR SODIUM [Concomitant]
     Route: 048
     Dates: start: 20080924
  17. RANITIDINE [Concomitant]
     Indication: DYSPEPSIA
     Route: 048
     Dates: start: 20080911
  18. ACETAMINOPHEN [Concomitant]
     Indication: PAIN IN EXTREMITY
     Route: 048
     Dates: start: 20080701, end: 20080701
  19. ACETAMINOPHEN [Concomitant]
     Indication: HEADACHE
     Route: 048
     Dates: start: 20080805, end: 20080805
  20. ACETAMINOPHEN [Concomitant]
     Dosage: ONE TIME TOTAL
     Route: 048
     Dates: start: 20080201, end: 20080430

REACTIONS (2)
  - PYODERMA [None]
  - RESPIRATORY TRACT INFECTION [None]
